FAERS Safety Report 6191146-9 (Version None)
Quarter: 2009Q2

REPORT INFORMATION
  Report Type: 
  Country: None (occurrence: None)
  Receive Date: 20090513
  Receipt Date: 20090513
  Transmission Date: 20091009
  Serious: Yes (Other)
  Sender: FDA-Public Use
  Company Number: None

PATIENT
  Age: 73 Year
  Sex: Female
  Weight: 75.7507 kg

DRUGS (2)
  1. CYMBALTA [Suspect]
     Indication: DEPRESSION
     Dosage: 1 A DAY
     Dates: start: 20080901, end: 20081001
  2. CYMBALTA [Suspect]
     Indication: NEUROPATHY PERIPHERAL
     Dosage: 1 A DAY
     Dates: start: 20080901, end: 20081001

REACTIONS (2)
  - PRURITUS [None]
  - VARICELLA [None]
